FAERS Safety Report 4392634-8 (Version None)
Quarter: 2004Q3

REPORT INFORMATION
  Report Type: 
  Country: None (occurrence: None)
  Receive Date: 20040701
  Receipt Date: 20040614
  Transmission Date: 20050211
  Serious: Yes (Hospitalization)
  Sender: FDA-Public Use
  Company Number: A02200401929

PATIENT
  Age: 84 Year
  Sex: Male

DRUGS (7)
  1. PLAVIX [Suspect]
     Dosage: 75 MG OD , ORAL
     Route: 048
     Dates: end: 20040517
  2. PRETERAX - (PERINDOPRIL/INDAPAMIDE) - TABLET - UNIT DOSE : UNKNOWN [Suspect]
     Dosage: 1 DF OD,  ORAL
     Route: 048
     Dates: end: 20040517
  3. ISOPTINE - (VERAPAMIL HYDROCHLORIDE) - TABLET PR - 240 MG [Suspect]
     Dosage: 240 MG OD,  ORAL
     Route: 048
     Dates: start: 20020615, end: 20040517
  4. PROPOXYPHENE HCL AND ACETAMINOPHEN [Suspect]
     Dosage: 3 DF QD , ORAL
     Route: 048
     Dates: end: 20040517
  5. VITAMIN B1 AND B6 (THIAMINE/PYRIDOXINE) [Concomitant]
  6. RISPERDAL [Concomitant]
  7. ULTRALEVURE (SACCHAROMYCES BOULARDII) [Concomitant]

REACTIONS (8)
  - BENIGN PROSTATIC HYPERPLASIA [None]
  - BLADDER DISTENSION [None]
  - DEHYDRATION [None]
  - HYPERNATRAEMIA [None]
  - HYPOKALAEMIA [None]
  - IATROGENIC INJURY [None]
  - POLYURIA [None]
  - POSTRENAL FAILURE [None]
